FAERS Safety Report 18599418 (Version 1)
Quarter: 2020Q4

REPORT INFORMATION
  Report Type: Report from Study
  Country: None (occurrence: US)
  Receive Date: 20201210
  Receipt Date: 20201210
  Transmission Date: 20210114
  Serious: Yes (Hospitalization)
  Sender: FDA-Public Use
  Company Number: US-INSMED, INC.-US-INS-20-01954

PATIENT
  Age: 66 Year
  Sex: Female

DRUGS (3)
  1. ARIKAYCE [Suspect]
     Active Substance: AMIKACIN
     Route: 055
     Dates: start: 20201125
  2. ARIKAYCE [Suspect]
     Active Substance: AMIKACIN
     Indication: MYCOBACTERIAL INFECTION
     Route: 055
     Dates: start: 202010, end: 202010
  3. HYPERSAL [Suspect]
     Active Substance: SODIUM CHLORIDE
     Indication: PRODUCT USED FOR UNKNOWN INDICATION
     Dates: end: 2020

REACTIONS (15)
  - Weight decreased [Not Recovered/Not Resolved]
  - Nausea [Recovering/Resolving]
  - Rehabilitation therapy [Unknown]
  - Diarrhoea [Not Recovered/Not Resolved]
  - Dysphonia [Not Recovered/Not Resolved]
  - Dyspnoea [Not Recovered/Not Resolved]
  - Therapy interrupted [Unknown]
  - Hospitalisation [Unknown]
  - Glossitis [Unknown]
  - Decreased appetite [Unknown]
  - Asthenia [Not Recovered/Not Resolved]
  - Throat irritation [Unknown]
  - Feeling abnormal [Unknown]
  - Physiotherapy [Unknown]
  - Fatigue [Unknown]

NARRATIVE: CASE EVENT DATE: 2020
